FAERS Safety Report 9448627 (Version 1)
Quarter: 2013Q3

REPORT INFORMATION
  Report Type: Spontaneous
  Country: US (occurrence: US)
  Receive Date: 20130808
  Receipt Date: 20130808
  Transmission Date: 20140515
  Serious: No
  Sender: FDA-Public Use
  Company Number: US-BAYER-2013-096265

PATIENT
  Age: 88 Year
  Sex: Female
  Weight: 66.21 kg

DRUGS (4)
  1. ALEVE TABLET [Suspect]
     Indication: ARTHRITIS
     Dosage: 2 DF, TID
     Route: 048
  2. LORAZEPAM [Concomitant]
  3. DYAZIDE [Concomitant]
  4. LEVOTHYROXINE [Concomitant]

REACTIONS (1)
  - Incorrect dose administered [None]
